FAERS Safety Report 4755676-6 (Version None)
Quarter: 2005Q3

REPORT INFORMATION
  Report Type: 
  Country: None (occurrence: None)
  Receive Date: 20050830
  Receipt Date: 20050627
  Transmission Date: 20060218
  Serious: No
  Sender: FDA-Public Use
  Company Number: US-BRISTOL-MYERS SQUIBB COMPANY-13016381

PATIENT
  Age: 23 Year
  Sex: Male
  Weight: 204 kg

DRUGS (4)
  1. ABILIFY [Suspect]
     Indication: ANXIETY
     Route: 048
  2. LEXAPRO [Concomitant]
  3. DEPAKOTE [Concomitant]
  4. RISPERDAL [Concomitant]

REACTIONS (3)
  - HEADACHE [None]
  - SOMNOLENCE [None]
  - VOMITING [None]
